FAERS Safety Report 17856565 (Version 3)
Quarter: 2020Q3

REPORT INFORMATION
  Report Type: Spontaneous
  Country: FR (occurrence: FR)
  Receive Date: 20200603
  Receipt Date: 20200918
  Transmission Date: 20201103
  Serious: Yes (Other)
  Sender: FDA-Public Use
  Company Number: FR-GILEAD-2020-0468856

PATIENT
  Sex: Male

DRUGS (7)
  1. TAHOR [Concomitant]
     Active Substance: ATORVASTATIN CALCIUM
     Dosage: 40 MG, QD
  2. BRILIQUE [Concomitant]
     Active Substance: TICAGRELOR
     Dosage: UNK, BID
  3. BISOPROLOL [Concomitant]
     Active Substance: BISOPROLOL
     Dosage: 2.5 MG, QD
  4. BIKTARVY [Suspect]
     Active Substance: BICTEGRAVIR SODIUM\EMTRICITABINE\TENOFOVIR ALAFENAMIDE FUMARATE
     Indication: HIV INFECTION
     Dosage: 1 DOSAGE FORM, QD
     Route: 065
     Dates: start: 201901
  5. ASPIRIN PROTECT [Concomitant]
     Active Substance: ASPIRIN
     Dosage: 100 MG, QD
  6. MOPRAL [OMEPRAZOLE] [Concomitant]
     Active Substance: OMEPRAZOLE
     Dosage: 20 MG, QD
  7. GAVISCON?L [Concomitant]
     Active Substance: ALGINIC ACID\SODIUM BICARBONATE

REACTIONS (10)
  - Weight increased [Unknown]
  - Ischaemic stroke [Unknown]
  - Hyperbilirubinaemia [Unknown]
  - Ecchymosis [Unknown]
  - Blood homocysteine increased [Unknown]
  - Gamma-glutamyltransferase increased [Unknown]
  - Cyst [Unknown]
  - Hydrocele [Unknown]
  - Myocardial infarction [Unknown]
  - Abdominal pain upper [Unknown]

NARRATIVE: CASE EVENT DATE: 201906
